FAERS Safety Report 12912634 (Version 1)
Quarter: 2016Q4

REPORT INFORMATION
  Report Type: Spontaneous
  Country: GB (occurrence: GB)
  Receive Date: 20161104
  Receipt Date: 20161104
  Transmission Date: 20170207
  Serious: Yes (Disabling, Other)
  Sender: FDA-Public Use
  Company Number: GB-UCBSA-2016041459

PATIENT
  Sex: Female

DRUGS (7)
  1. CARBIDOPA/LEVODOPA [Suspect]
     Active Substance: CARBIDOPA\LEVODOPA
     Indication: PRODUCT USED FOR UNKNOWN INDICATION
     Dosage: 2 DF, ONCE DAILY (QD)
     Route: 048
  2. SINEMET [Suspect]
     Active Substance: CARBIDOPA\LEVODOPA
     Indication: PRODUCT USED FOR UNKNOWN INDICATION
     Dosage: UNK
  3. SINEMET [Suspect]
     Active Substance: CARBIDOPA\LEVODOPA
     Dosage: ONE LESS TABLET OF CARBIDOPA (+) LEVODOPA PER DAY
  4. SINEMET PLUS [Suspect]
     Active Substance: CARBIDOPA\LEVODOPA
     Indication: PRODUCT USED FOR UNKNOWN INDICATION
     Dosage: 0.75 DF, ONCE DAILY (QD)
  5. ROTIGOTINE [Suspect]
     Active Substance: ROTIGOTINE
     Indication: PRODUCT USED FOR UNKNOWN INDICATION
     Dosage: 4 MG PATCH INSTEAD OF 2 MG
  6. CARBIDOPA/LEVODOPA [Suspect]
     Active Substance: CARBIDOPA\LEVODOPA
     Dosage: 1 DF, ONCE DAILY (QD)
     Route: 048
  7. ENTACAPONE. [Concomitant]
     Active Substance: ENTACAPONE
     Indication: PRODUCT USED FOR UNKNOWN INDICATION

REACTIONS (16)
  - Lack of spontaneous speech [Unknown]
  - Eye disorder [Unknown]
  - Hallucination [Unknown]
  - Slow speech [Unknown]
  - Therapeutic response unexpected [Unknown]
  - Depression [Unknown]
  - Excessive eye blinking [Unknown]
  - Food craving [Unknown]
  - Sciatica [Unknown]
  - Drug dose omission [Unknown]
  - Weight increased [Unknown]
  - Pain [Recovering/Resolving]
  - Poor quality sleep [Unknown]
  - Vision blurred [Unknown]
  - Photopsia [Unknown]
  - Increased appetite [Unknown]

NARRATIVE: CASE EVENT DATE: 201607
